FAERS Safety Report 4375656-2 (Version None)
Quarter: 2004Q2

REPORT INFORMATION
  Report Type: 
  Country: None (occurrence: None)
  Receive Date: 20040610
  Receipt Date: 20040517
  Transmission Date: 20050107
  Serious: Yes (Hospitalization)
  Sender: FDA-Public Use
  Company Number: JP-GLAXOSMITHKLINE-B0333044A

PATIENT
  Age: 73 Year
  Sex: Female
  Weight: 57 kg

DRUGS (5)
  1. PAXIL [Suspect]
     Indication: DEPRESSION
     Route: 048
     Dates: start: 20040331, end: 20040511
  2. DOGMATYL [Suspect]
     Indication: DEPRESSION
     Dosage: 50MG PER DAY
     Route: 048
     Dates: start: 20040331, end: 20040511
  3. MYSLEE [Suspect]
     Indication: INSOMNIA
     Dosage: 10MG PER DAY
     Route: 048
     Dates: start: 20040331
  4. ESTAZOLAM [Suspect]
     Indication: INSOMNIA
     Dosage: 2MG PER DAY
     Route: 048
     Dates: start: 20040331
  5. NEO-MERCAZOLE TAB [Concomitant]
     Indication: HYPERTHYROIDISM
     Route: 048

REACTIONS (4)
  - AGGRESSION [None]
  - DISORIENTATION [None]
  - HOARSENESS [None]
  - MANIA [None]
